FAERS Safety Report 5239956-6 (Version None)
Quarter: 2007Q1

REPORT INFORMATION
  Report Type: 
  Country: None (occurrence: None)
  Receive Date: 20070216
  Receipt Date: 20070207
  Transmission Date: 20070707
  Serious: Yes (Death, Hospitalization)
  Sender: FDA-Public Use
  Company Number: AR-PFIZER INC-2006109040

PATIENT
  Sex: Female
  Weight: 63.5 kg

DRUGS (13)
  1. SU-011,248 [Suspect]
     Indication: RENAL CELL CARCINOMA STAGE UNSPECIFIED
     Route: 048
  2. SU-011,248 [Suspect]
  3. ALL OTHER THERAPEUTIC PRODUCTS [Concomitant]
     Route: 048
  4. DICLOFENAC SODIUM [Concomitant]
     Route: 048
     Dates: start: 20060501
  5. DEXTROPROPOXYPHENE [Concomitant]
     Route: 048
     Dates: start: 20060614
  6. IBUPROFEN [Concomitant]
     Route: 048
     Dates: start: 20060614
  7. DEXAMETHASONE [Concomitant]
     Route: 030
     Dates: start: 20060614, end: 20060614
  8. ENALAPRIL MALEATE [Concomitant]
     Route: 048
     Dates: start: 20060614
  9. TRAMADOL HCL [Concomitant]
     Route: 048
     Dates: start: 20060613, end: 20060620
  10. LEVOFLOXACIN [Concomitant]
     Route: 048
     Dates: start: 20060630, end: 20060705
  11. OXYCODONE HCL [Concomitant]
     Route: 048
     Dates: start: 20060814
  12. MEPREDNISONE [Concomitant]
     Route: 048
     Dates: start: 20060814
  13. AMOXICILLIN [Concomitant]
     Route: 048
     Dates: start: 20060814, end: 20060827

REACTIONS (3)
  - ISCHAEMIC STROKE [None]
  - NECROTISING FASCIITIS [None]
  - RENAL ABSCESS [None]
